FAERS Safety Report 7632508-X (Version None)
Quarter: 2011Q3

REPORT INFORMATION
  Report Type: 
  Country: None (occurrence: None)
  Receive Date: 20110725
  Receipt Date: 20100927
  Transmission Date: 20111222
  Serious: No
  Sender: FDA-Public Use
  Company Number: US-BRISTOL-MYERS SQUIBB COMPANY-15305527

PATIENT
  Age: 85 Year
  Sex: Female

DRUGS (1)
  1. COUMADIN [Suspect]
     Indication: CARDIAC DISORDER
     Dates: start: 20071001

REACTIONS (1)
  - INTERNATIONAL NORMALISED RATIO FLUCTUATION [None]
